FAERS Safety Report 10034817 (Version 1)
Quarter: 2014Q1

REPORT INFORMATION
  Report Type: Spontaneous
  Country: US (occurrence: None)
  Receive Date: 20140306
  Receipt Date: 20140306
  Transmission Date: 20141002
  Serious: Yes (Other)
  Sender: FDA-Public Use
  Company Number: 163-21880-13113274

PATIENT
  Age: 71 Year
  Sex: Female

DRUGS (4)
  1. REVLIMID [Suspect]
     Indication: PLASMA CELL MYELOMA
     Dosage: 25 MG, 21 IN 21 D, PO
     Route: 048
     Dates: start: 20131031
  2. OMEPRAZOLE (OMEPRAZOLE) [Concomitant]
  3. SPIRONOLACTONE (SPIRONOLACTONE) [Concomitant]
  4. AMLODIPINE BESYLATE (AMLODIPINE BESILATE) [Concomitant]

REACTIONS (3)
  - Blood glucose increased [None]
  - Fatigue [None]
  - Dizziness [None]
